FAERS Safety Report 9164553 (Version 1)
Quarter: 2013Q1

REPORT INFORMATION
  Report Type: Spontaneous
  Country: CH (occurrence: CH)
  Receive Date: 20130315
  Receipt Date: 20130315
  Transmission Date: 20140127
  Serious: Yes (Death, Other)
  Sender: FDA-Public Use
  Company Number: PHHY2013CH025102

PATIENT
  Sex: 0

DRUGS (2)
  1. VALSARTAN [Suspect]
     Route: 064
  2. ROSUVASTATIN [Suspect]
     Route: 064

REACTIONS (4)
  - Foetal death [Fatal]
  - Cardiomegaly [Unknown]
  - Foetal arrhythmia [Unknown]
  - Foetal exposure during pregnancy [Unknown]
